FAERS Safety Report 10084749 (Version 1)
Quarter: 2014Q2

REPORT INFORMATION
  Report Type: Spontaneous
  Country: FR (occurrence: FR)
  Receive Date: 20140417
  Receipt Date: 20140417
  Transmission Date: 20141212
  Serious: Yes (Other)
  Sender: FDA-Public Use
  Company Number: FR-GLAXOSMITHKLINE-B0986709A

PATIENT
  Age: 70 Year
  Sex: Male

DRUGS (11)
  1. SORIATANE [Suspect]
     Indication: PSORIASIS
     Route: 048
     Dates: start: 20130403
  2. COOLMETEC [Concomitant]
  3. LYSINE ACETYLSALICYLATE [Concomitant]
  4. PAROXETINE [Concomitant]
  5. LEPONEX [Concomitant]
  6. EXELON [Concomitant]
  7. ATARAX [Concomitant]
  8. MOTILIUM [Concomitant]
  9. PANTOPRAZOLE [Concomitant]
  10. PERMIXON [Concomitant]
  11. XATRAL [Concomitant]

REACTIONS (1)
  - Eosinophilia [Not Recovered/Not Resolved]
